FAERS Safety Report 11135690 (Version 1)
Quarter: 2015Q2

REPORT INFORMATION
  Report Type: Spontaneous
  Country: US (occurrence: None)
  Receive Date: 20150522
  Receipt Date: 20150522
  Transmission Date: 20150821
  Serious: Yes (Other)
  Sender: FDA-Public Use
  Company Number: None

PATIENT
  Age: 23 Year
  Sex: Female
  Weight: 88 kg

DRUGS (1)
  1. WARFARIN [Suspect]
     Active Substance: WARFARIN
     Indication: INTRACRANIAL VENOUS SINUS THROMBOSIS
     Dosage: 5 MG (5 MG X 1) ON SUN, THU; 7 QD ORAL
     Route: 048

REACTIONS (1)
  - International normalised ratio decreased [None]

NARRATIVE: CASE EVENT DATE: 20150518
